FAERS Safety Report 7050175-3 (Version None)
Quarter: 2010Q4

REPORT INFORMATION
  Report Type: 
  Country: None (occurrence: None)
  Receive Date: 20101018
  Receipt Date: 20101013
  Transmission Date: 20110411
  Serious: Yes (Hospitalization)
  Sender: FDA-Public Use
  Company Number: PHHO2010CZ15524

PATIENT
  Sex: Male
  Weight: 112 kg

DRUGS (5)
  1. BLINDED ALISKIREN ALI+TAB+CF [Suspect]
     Dosage: CODE NOT BROKEN
     Dates: start: 20100408
  2. ENALAPRIL MALEATE [Suspect]
     Dosage: CODE NOT BROKEN
     Dates: start: 20100408
  3. BLINDED NO TREATMENT RECEIVED NOMED [Suspect]
     Dosage: CODE NOT BROKEN
     Dates: start: 20100408
  4. ALISKIREN [Suspect]
  5. COMPARATOR ENALAPRIL [Suspect]

REACTIONS (2)
  - CARDIAC FAILURE [None]
  - PULMONARY OEDEMA [None]
